FAERS Safety Report 20040046 (Version 1)
Quarter: 2021Q4

REPORT INFORMATION
  Report Type: Report from Study
  Country: MX (occurrence: MX)
  Receive Date: 20211106
  Receipt Date: 20211106
  Transmission Date: 20220304
  Serious: Yes (Other)
  Sender: FDA-Public Use
  Company Number: MX-NOVARTISPH-NVSC2021MX254140

PATIENT
  Sex: Female
  Weight: 57 kg

DRUGS (1)
  1. HYDROCHLOROTHIAZIDE\VALSARTAN [Suspect]
     Active Substance: HYDROCHLOROTHIAZIDE\VALSARTAN
     Indication: Hypertension
     Dosage: 1 DF, QD (MORE THAN 10 YEARS AGO)
     Route: 048

REACTIONS (3)
  - Parkinson^s disease [Unknown]
  - Diabetes mellitus [Unknown]
  - Depression [Unknown]
